FAERS Safety Report 20032122 (Version 1)
Quarter: 2021Q4

REPORT INFORMATION
  Report Type: Spontaneous
  Country: US (occurrence: US)
  Receive Date: 20211103
  Receipt Date: 20211103
  Transmission Date: 20220303
  Serious: No
  Sender: FDA-Public Use
  Company Number: US-ALLERGAN-2131108US

PATIENT
  Age: 17 Year
  Sex: Female

DRUGS (3)
  1. VRAYLAR [Suspect]
     Active Substance: CARIPRAZINE
     Indication: Bipolar disorder
     Dosage: DOUBLED DOSE
     Dates: start: 202108
  2. VRAYLAR [Suspect]
     Active Substance: CARIPRAZINE
     Dosage: STARTED ON THE LOWEST DOSE
     Dates: start: 202106
  3. UNSPECIFIED INGREDIENT [Concomitant]
     Active Substance: UNSPECIFIED INGREDIENT
     Indication: Contraception
     Dosage: UNK

REACTIONS (7)
  - Torticollis [Recovered/Resolved]
  - Somnolence [Unknown]
  - Mental disorder [Unknown]
  - Off label use [Unknown]
  - Akathisia [Unknown]
  - Oculogyric crisis [Recovered/Resolved]
  - Drug ineffective [Unknown]

NARRATIVE: CASE EVENT DATE: 20210601
